FAERS Safety Report 6750573-9 (Version None)
Quarter: 2010Q2

REPORT INFORMATION
  Report Type: 
  Country: None (occurrence: None)
  Receive Date: 20100528
  Receipt Date: 20100528
  Transmission Date: 20101027
  Serious: No
  Sender: FDA-Public Use
  Company Number: None

PATIENT
  Age: 64 Year
  Sex: Female
  Weight: 62.5964 kg

DRUGS (1)
  1. BONIVA [Suspect]
     Indication: OSTEOPENIA
     Dosage: 150 MG ONCE A MONTH PO
     Route: 048
     Dates: start: 20050901, end: 20100526

REACTIONS (2)
  - BONE DENSITY DECREASED [None]
  - DRUG INEFFECTIVE [None]
